FAERS Safety Report 10799420 (Version 1)
Quarter: 2015Q1

REPORT INFORMATION
  Report Type: Report from Study
  Country: US (occurrence: US)
  Receive Date: 20150216
  Receipt Date: 20150216
  Transmission Date: 20150721
  Serious: No
  Sender: FDA-Public Use
  Company Number: US-ABBVIE-14K-163-1242665-00

PATIENT
  Age: 47 Year
  Sex: Male

DRUGS (7)
  1. HYDROCODONE/IBUPROFEN [Concomitant]
     Active Substance: HYDROCODONE\IBUPROFEN
     Indication: ECZEMA
     Dosage: 7.5/200MG
  2. HUMIRA [Suspect]
     Active Substance: ADALIMUMAB
     Indication: PSORIASIS
     Dates: start: 20140506
  3. ACIPHEX [Concomitant]
     Active Substance: RABEPRAZOLE SODIUM
     Indication: GASTROINTESTINAL ULCER
     Dosage: MAINTENANCE
  4. LORAZEPAM. [Concomitant]
     Active Substance: LORAZEPAM
     Indication: MANIA
     Dosage: 2MG OR 3 MG
  5. LUNESTA [Concomitant]
     Active Substance: ESZOPICLONE
     Indication: SLEEP DISORDER
  6. FLUOXETINE [Concomitant]
     Active Substance: FLUOXETINE\FLUOXETINE HYDROCHLORIDE
     Indication: DEPRESSION
  7. HYDROCODONE/IBUPROFEN [Concomitant]
     Active Substance: HYDROCODONE\IBUPROFEN
     Indication: PAIN

REACTIONS (3)
  - Rash macular [Not Recovered/Not Resolved]
  - Rash papular [Not Recovered/Not Resolved]
  - Skin discolouration [Not Recovered/Not Resolved]

NARRATIVE: CASE EVENT DATE: 20140524
